FAERS Safety Report 24269886 (Version 1)
Quarter: 2024Q3

REPORT INFORMATION
  Report Type: Spontaneous
  Country: RU (occurrence: None)
  Receive Date: 20240830
  Receipt Date: 20240830
  Transmission Date: 20241017
  Serious: Yes (Other)
  Sender: ASTRAZENECA
  Company Number: 2024A192930

PATIENT
  Age: 71 Year
  Sex: Female

DRUGS (2)
  1. DAPAGLIFLOZIN [Suspect]
     Active Substance: DAPAGLIFLOZIN
     Indication: Type 2 diabetes mellitus
     Route: 048
     Dates: start: 2022
  2. ENTEROL [Concomitant]

REACTIONS (3)
  - Haemorrhagic vasculitis [Unknown]
  - Weight decreased [Unknown]
  - Rash [Unknown]
